FAERS Safety Report 6077539-9 (Version None)
Quarter: 2009Q1

REPORT INFORMATION
  Report Type: 
  Country: None (occurrence: None)
  Receive Date: 20090211
  Receipt Date: 20090130
  Transmission Date: 20090719
  Serious: Yes (Hospitalization)
  Sender: FDA-Public Use
  Company Number: 2008-184395-NL

PATIENT
  Age: 39 Year
  Sex: Male

DRUGS (5)
  1. MIRTAZAPINE [Suspect]
     Dosage: 30 MG/15 MG
     Dates: start: 20080703, end: 20080715
  2. MIRTAZAPINE [Suspect]
     Dosage: 30 MG/15 MG
     Dates: start: 20080716, end: 20080721
  3. MIRTAZAPINE [Suspect]
  4. CARBAMAZEPINE [Concomitant]
  5. TIAPRIDE HYDROCHLORIDE [Concomitant]

REACTIONS (5)
  - BLOOD CREATINE PHOSPHOKINASE INCREASED [None]
  - BLOOD CREATININE INCREASED [None]
  - DRUG INEFFECTIVE [None]
  - MYALGIA [None]
  - PAIN IN EXTREMITY [None]
